FAERS Safety Report 6465783-8 (Version None)
Quarter: 2009Q4

REPORT INFORMATION
  Report Type: 
  Country: None (occurrence: None)
  Receive Date: 20091124
  Receipt Date: 20091116
  Transmission Date: 20100525
  Serious: Yes (Other)
  Sender: FDA-Public Use
  Company Number: 2009SP018396

PATIENT
  Age: 23 Year
  Sex: Female

DRUGS (2)
  1. DESLORATADINE [Suspect]
     Indication: RHINITIS ALLERGIC
     Dosage: 1 DF; QD; PO
     Route: 048
     Dates: start: 20090101
  2. PULMICORT [Concomitant]

REACTIONS (4)
  - CONDITION AGGRAVATED [None]
  - COUGH [None]
  - DRUG HYPERSENSITIVITY [None]
  - RESPIRATORY DISORDER [None]
